FAERS Safety Report 12105451 (Version 1)
Quarter: 2016Q1

REPORT INFORMATION
  Report Type: Spontaneous
  Country: US (occurrence: None)
  Receive Date: 20160222
  Receipt Date: 20160222
  Transmission Date: 20160526
  Serious: Yes (Hospitalization)
  Sender: FDA-Public Use
  Company Number: None

PATIENT
  Age: 57 Year
  Sex: Male
  Weight: 87.09 kg

DRUGS (2)
  1. RESPERIDONE 0.5MG TAB AJA SUSTITUTED FOR RESPERDAL 0.,5MG TAB [Suspect]
     Active Substance: RISPERIDONE
     Indication: SLEEP DISORDER
     Dosage: 1 OR 2 TABS
     Route: 048
     Dates: start: 20160118, end: 20160122
  2. METOPROLOL. [Concomitant]
     Active Substance: METOPROLOL

REACTIONS (2)
  - Dystonia [None]
  - Tardive dyskinesia [None]

NARRATIVE: CASE EVENT DATE: 20160123
